FAERS Safety Report 24100659 (Version 1)
Quarter: 2024Q3

REPORT INFORMATION
  Report Type: Spontaneous
  Country: US (occurrence: US)
  Receive Date: 20240717
  Receipt Date: 20240717
  Transmission Date: 20241017
  Serious: No
  Sender: NOVO NORDISK
  Company Number: US-NOVOPROD-1222706

PATIENT
  Age: 70 Year
  Sex: Female

DRUGS (1)
  1. OZEMPIC [Suspect]
     Active Substance: SEMAGLUTIDE
     Indication: Type 2 diabetes mellitus
     Dosage: 0.5MG
     Route: 058
     Dates: start: 20240507

REACTIONS (7)
  - Pain [Recovering/Resolving]
  - Pain in extremity [Recovering/Resolving]
  - Product storage error [Recovered/Resolved]
  - Product label confusion [Unknown]
  - Incorrect dose administered [Unknown]
  - Product communication issue [Unknown]
  - Incorrect disposal of product [Unknown]

NARRATIVE: CASE EVENT DATE: 20240507
